FAERS Safety Report 8985811 (Version 4)
Quarter: 2013Q1

REPORT INFORMATION
  Report Type: Report from Study
  Country: US (occurrence: US)
  Receive Date: 20121226
  Receipt Date: 20130305
  Transmission Date: 20140127
  Serious: Yes (Hospitalization, Other)
  Sender: FDA-Public Use
  Company Number: US-SANOFI-AVENTIS-2012SA091736

PATIENT
  Sex: Female

DRUGS (26)
  1. DOCETAXEL [Suspect]
     Indication: SQUAMOUS CELL CARCINOMA
     Route: 065
     Dates: start: 20121115
  2. DOCETAXEL [Suspect]
     Indication: SQUAMOUS CELL CARCINOMA
     Route: 065
     Dates: start: 20121206
  3. BLINDED THERAPY [Suspect]
     Indication: SQUAMOUS CELL CARCINOMA
     Route: 048
     Dates: start: 20121115, end: 20121129
  4. BLINDED THERAPY [Suspect]
     Indication: SQUAMOUS CELL CARCINOMA
     Dates: start: 20121206
  5. CISPLATIN [Suspect]
     Indication: SQUAMOUS CELL CARCINOMA
     Route: 042
     Dates: start: 20121115
  6. CISPLATIN [Suspect]
     Indication: SQUAMOUS CELL CARCINOMA
     Route: 042
     Dates: start: 20121206
  7. COMPAZINE [Concomitant]
  8. VITAMIN B12 [Concomitant]
  9. FENTANYL [Concomitant]
  10. CELEXA [Concomitant]
  11. TESSALON PERLE [Concomitant]
  12. ACETAMINOPHEN [Concomitant]
  13. DEXAMETHASONE [Concomitant]
  14. DOC-Q-LACE [Concomitant]
  15. DOXYCYCLINE MONOHYDRATE [Concomitant]
  16. HYDROCODONE [Concomitant]
  17. FERROUS FUMARATE/IRON [Concomitant]
  18. NEULASTA [Concomitant]
  19. OMEPRAZOLE [Concomitant]
  20. PROCHLORPERAZINE [Concomitant]
  21. TRAZODONE [Concomitant]
  22. REQUIP [Concomitant]
  23. RANITIDINE [Concomitant]
  24. COMPAZINE [Concomitant]
  25. MELOXICAM [Concomitant]
  26. NORCO [Concomitant]

REACTIONS (14)
  - Hyponatraemia [Recovered/Resolved]
  - Hypokalaemia [Recovering/Resolving]
  - Diarrhoea [Recovered/Resolved]
  - Dehydration [Recovering/Resolving]
  - Pyrexia [Recovered/Resolved]
  - Anaemia of chronic disease [Recovering/Resolving]
  - Decreased appetite [Recovering/Resolving]
  - Nausea [Recovering/Resolving]
  - Thrombocytopenia [Recovering/Resolving]
  - Hyperbilirubinaemia [Recovered/Resolved]
  - Candida test positive [Unknown]
  - Productive cough [Unknown]
  - Stomatitis [Recovering/Resolving]
  - Klebsiella test positive [Unknown]
